FAERS Safety Report 24173885 (Version 1)
Quarter: 2024Q3

REPORT INFORMATION
  Report Type: Spontaneous
  Country: US (occurrence: US)
  Receive Date: 20240805
  Receipt Date: 20240805
  Transmission Date: 20241016
  Serious: Yes (Hospitalization)
  Sender: CHEPLAPHARM
  Company Number: US-AstraZeneca-2024A168966

PATIENT
  Sex: Female

DRUGS (5)
  1. BUDESONIDE [Suspect]
     Active Substance: BUDESONIDE
     Dosage: RESPIRATORY (INHALATION)
     Route: 055
  2. FASENRA [Suspect]
     Active Substance: BENRALIZUMAB
     Dosage: SOLUTION FOR INJECTION IN PRE-FILLED PEN
     Route: 058
  3. SYMBICORT [Suspect]
     Active Substance: BUDESONIDE\FORMOTEROL FUMARATE DIHYDRATE
     Indication: Bronchospasm
     Dosage: RESPIRATORY (INHALATION)
     Route: 055
  4. SYMBICORT [Suspect]
     Active Substance: BUDESONIDE\FORMOTEROL FUMARATE DIHYDRATE
     Indication: Asthma
     Dosage: RESPIRATORY (INHALATION)
     Route: 055
  5. BUDESONIDE\FORMOTEROL [Suspect]
     Active Substance: BUDESONIDE\FORMOTEROL
     Dosage: RESPIRATORY (INHALATION)
     Route: 055

REACTIONS (2)
  - Obstructive airways disorder [Unknown]
  - Asthma-chronic obstructive pulmonary disease overlap syndrome [Unknown]
